FAERS Safety Report 6756098-9 (Version None)
Quarter: 2010Q2

REPORT INFORMATION
  Report Type: 
  Country: None (occurrence: None)
  Receive Date: 20100604
  Receipt Date: 20100525
  Transmission Date: 20101027
  Serious: Yes (Other)
  Sender: FDA-Public Use
  Company Number: GB-PFIZER INC-2010056475

PATIENT
  Sex: Female

DRUGS (1)
  1. DETRUSITOL [Suspect]
     Indication: INCONTINENCE
     Dosage: 4 MG, UNK
     Route: 048

REACTIONS (3)
  - AGEUSIA [None]
  - OEDEMA MOUTH [None]
  - SWOLLEN TONGUE [None]
